FAERS Safety Report 9747906 (Version 1)
Quarter: 2013Q4

REPORT INFORMATION
  Report Type: Spontaneous
  Country: US (occurrence: None)
  Receive Date: 20131211
  Receipt Date: 20131211
  Transmission Date: 20140711
  Serious: Yes (Disabling)
  Sender: FDA-Public Use
  Company Number: None

PATIENT
  Age: 74 Year
  Sex: Female
  Weight: 56.7 kg

DRUGS (19)
  1. AUBAGIO [Suspect]
     Indication: MULTIPLE SCLEROSIS
     Dosage: 1 Q DAY  P.O.
     Route: 048
     Dates: start: 20130815, end: 20131104
  2. AMANTADINE [Concomitant]
  3. AMLODIPINE [Concomitant]
  4. BACLOFEN [Concomitant]
  5. CLONZEPAM [Concomitant]
  6. FLUOXETINE [Concomitant]
  7. FUROSEMIDE [Concomitant]
  8. GABAPENTIN [Concomitant]
  9. LEVOTHYROXINE [Concomitant]
  10. SIMVASTATIN [Concomitant]
  11. TROSPIUM [Concomitant]
  12. FLUTICASONE [Concomitant]
  13. CLINDAMYCIN [Concomitant]
  14. VIT D3 [Concomitant]
  15. CA+ [Concomitant]
  16. FOLIC ACID [Concomitant]
  17. MSM [Concomitant]
  18. METAMUCIL [Concomitant]
  19. CQ10 [Concomitant]

REACTIONS (4)
  - Androgenetic alopecia [None]
  - Multiple sclerosis relapse [None]
  - Impaired driving ability [None]
  - Activities of daily living impaired [None]
